FAERS Safety Report 13802573 (Version 1)
Quarter: 2017Q3

REPORT INFORMATION
  Report Type: Spontaneous
  Country: FR (occurrence: FR)
  Receive Date: 20170728
  Receipt Date: 20170728
  Transmission Date: 20171127
  Serious: Yes (Other)
  Sender: FDA-Public Use
  Company Number: FR-BAYER-2017-137745

PATIENT
  Age: 2 Year
  Sex: Female

DRUGS (3)
  1. SORAFENIB (RAF KINASE INHIBITOR) [Suspect]
     Active Substance: SORAFENIB
     Indication: RENAL NEOPLASM
     Dosage: 200 MG, BID
  2. SORAFENIB (RAF KINASE INHIBITOR) [Suspect]
     Active Substance: SORAFENIB
     Indication: RENAL NEOPLASM
     Dosage: 400 MG, BID
  3. SORAFENIB (RAF KINASE INHIBITOR) [Suspect]
     Active Substance: SORAFENIB
     Indication: RENAL NEOPLASM
     Dosage: 200 MG, BID

REACTIONS (7)
  - Renal cancer [None]
  - Off label use [None]
  - Metastatic neoplasm [None]
  - Proteinuria [None]
  - Drug administered to patient of inappropriate age [None]
  - Hypertension [None]
  - Product use in unapproved indication [None]
